FAERS Safety Report 24376458 (Version 1)
Quarter: 2024Q3

REPORT INFORMATION
  Report Type: Spontaneous
  Country: US (occurrence: US)
  Receive Date: 20240930
  Receipt Date: 20240930
  Transmission Date: 20241017
  Serious: No
  Sender: PADAGIS
  Company Number: US-PADAGIS-2024PAD01517

PATIENT

DRUGS (6)
  1. DESONIDE [Suspect]
     Active Substance: DESONIDE
     Indication: Rash
     Dosage: UNK
     Route: 061
  2. DESONIDE [Suspect]
     Active Substance: DESONIDE
     Dosage: TAPER OFF FOR 2 WEEKS
     Route: 065
  3. TACROLIMUS [Concomitant]
     Active Substance: TACROLIMUS
     Indication: Psoriasis
     Dosage: UNK 1%
     Route: 065
  4. METRONIDAZOLE [Concomitant]
     Active Substance: METRONIDAZOLE
     Indication: Rash
     Dosage: 2 TIMES A DAY
     Route: 061
  5. DAPSONE [Concomitant]
     Active Substance: DAPSONE
     Indication: Product used for unknown indication
     Dosage: UNK
     Route: 061
  6. INFLECTRA [Concomitant]
     Active Substance: INFLIXIMAB-DYYB
     Indication: Colitis ulcerative
     Dosage: UNK INFUSION
     Route: 065

REACTIONS (2)
  - Skin hypertrophy [Unknown]
  - Rebound effect [Unknown]
